FAERS Safety Report 6795135-2 (Version None)
Quarter: 2010Q2

REPORT INFORMATION
  Report Type: 
  Country: None (occurrence: None)
  Receive Date: 20100625
  Receipt Date: 20100615
  Transmission Date: 20101027
  Serious: Yes (Life-Threatening)
  Sender: FDA-Public Use
  Company Number: GB-SANOFI-AVENTIS-2010SA034797

PATIENT
  Age: 48 Year
  Sex: Female
  Weight: 82 kg

DRUGS (5)
  1. HYDROXYCHLOROQUINE [Suspect]
     Indication: RHEUMATOID ARTHRITIS
     Route: 048
     Dates: start: 20090801, end: 20090901
  2. BECLOMETHASONE DIPROPIONATE [Concomitant]
     Indication: ASTHMA
     Dosage: DOSE:2 UNIT(S)
     Route: 065
  3. INSULIN [Concomitant]
     Route: 058
  4. OMEPRAZOLE [Concomitant]
     Indication: DYSPEPSIA
     Route: 048
  5. SALBUTAMOL [Concomitant]
     Indication: ASTHMA
     Dosage: DOSE:2 UNIT(S)
     Route: 065

REACTIONS (2)
  - DIABETES MELLITUS INADEQUATE CONTROL [None]
  - HYPERGLYCAEMIA [None]
